FAERS Safety Report 18250382 (Version 2)
Quarter: 2020Q4

REPORT INFORMATION
  Report Type: Report from Study
  Country: FR (occurrence: FR)
  Receive Date: 20200909
  Receipt Date: 20201006
  Transmission Date: 20210113
  Serious: Yes (Hospitalization)
  Sender: FDA-Public Use
  Company Number: FR-CELGENEUS-FRA-20200900018

PATIENT
  Age: 70 Year
  Sex: Male
  Weight: 96 kg

DRUGS (10)
  1. IDHIFA [Suspect]
     Active Substance: ENASIDENIB MESYLATE
     Dosage: 100 MILLIGRAM
     Route: 048
     Dates: start: 202006, end: 20200803
  2. PARACETAMOL [Concomitant]
     Active Substance: ACETAMINOPHEN
     Indication: ARTHRALGIA
     Route: 048
     Dates: start: 20200727, end: 20200812
  3. PARACETAMOL [Concomitant]
     Active Substance: ACETAMINOPHEN
     Indication: DEEP VEIN THROMBOSIS
  4. IDHIFA [Suspect]
     Active Substance: ENASIDENIB MESYLATE
     Indication: ACUTE MYELOID LEUKAEMIA
     Dosage: 50 MILLIGRAM
     Route: 048
     Dates: start: 201911
  5. GLICLAZIDE ER [Concomitant]
     Indication: TYPE 2 DIABETES MELLITUS
     Dosage: 60 MILLIGRAM
     Route: 048
  6. SODIUM ENOXAPARIN [Concomitant]
     Active Substance: ENOXAPARIN SODIUM
     Indication: DEEP VEIN THROMBOSIS
     Dosage: 4000 IU (INTERNATIONAL UNIT)
     Route: 030
     Dates: start: 20200803
  7. IRBESARTAN. [Concomitant]
     Active Substance: IRBESARTAN
     Indication: HYPERTENSION
     Dosage: 75 MILLIGRAM
     Route: 048
  8. CEFOTAXIME [Concomitant]
     Active Substance: CEFOTAXIME SODIUM
     Indication: PNEUMONIA
     Dosage: 4 MILLIGRAM
     Route: 048
     Dates: start: 20200728, end: 20200803
  9. CEFOTAXIME [Concomitant]
     Active Substance: CEFOTAXIME SODIUM
     Indication: DEEP VEIN THROMBOSIS
  10. SKENAN ER [Concomitant]
     Indication: ARTHRALGIA
     Dosage: 60 MILLIGRAM
     Route: 048
     Dates: start: 20200811

REACTIONS (3)
  - Arthralgia [Not Recovered/Not Resolved]
  - Jaundice [Not Recovered/Not Resolved]
  - Arthralgia [Unknown]

NARRATIVE: CASE EVENT DATE: 2020
